FAERS Safety Report 14035423 (Version 1)
Quarter: 2017Q4

REPORT INFORMATION
  Report Type: Report from Study
  Country: BR (occurrence: BR)
  Receive Date: 20171003
  Receipt Date: 20171003
  Transmission Date: 20180321
  Serious: Yes (Hospitalization)
  Sender: FDA-Public Use
  Company Number: PHHY2017BR141611

PATIENT
  Sex: Female
  Weight: 51 kg

DRUGS (1)
  1. ENTRESTO [Suspect]
     Active Substance: SACUBITRIL\VALSARTAN
     Indication: CARDIOMEGALY
     Dosage: 50 MG (24MG OF SACUBITRIL AND 26MG OF VALSARTAN), QD
     Route: 048

REACTIONS (6)
  - Cardiac disorder [Recovering/Resolving]
  - Heart rate decreased [Recovering/Resolving]
  - Inappropriate schedule of drug administration [Unknown]
  - Hypophagia [Unknown]
  - Drug prescribing error [Unknown]
  - Product use in unapproved indication [Unknown]
